FAERS Safety Report 11022443 (Version 1)
Quarter: 2015Q2

REPORT INFORMATION
  Report Type: Spontaneous
  Country: US (occurrence: US)
  Receive Date: 20150413
  Receipt Date: 20150413
  Transmission Date: 20150821
  Serious: Yes (Hospitalization, Other)
  Sender: FDA-Public Use
  Company Number: US-ASTELLAS-2014US010966

PATIENT
  Age: 63 Year
  Sex: Male

DRUGS (1)
  1. PROGRAF [Suspect]
     Active Substance: TACROLIMUS\TACROLIMUS ANHYDROUS
     Indication: TRANSPLANT
     Route: 048
     Dates: start: 20120327

REACTIONS (3)
  - Staphylococcal abscess [Recovered/Resolved]
  - Abscess rupture [Recovered/Resolved]
  - Immunodeficiency [Recovered/Resolved]

NARRATIVE: CASE EVENT DATE: 20140527
